FAERS Safety Report 17443763 (Version 1)
Quarter: 2020Q1

REPORT INFORMATION
  Report Type: Spontaneous
  Country: US (occurrence: US)
  Receive Date: 20200206
  Receipt Date: 20200206
  Transmission Date: 20200409
  Serious: No
  Sender: FDA-Public Use
  Company Number: None

PATIENT
  Age: 10 Year
  Weight: 65.5 kg

DRUGS (1)
  1. AMANTADINE ORAL SYRUP 50MG/5ML [Suspect]
     Active Substance: AMANTADINE
     Indication: ANTIVIRAL TREATMENT
     Dosage: ?          OTHER FREQUENCY:Q12;?

REACTIONS (2)
  - Toxicologic test abnormal [None]
  - Unresponsive to stimuli [None]

NARRATIVE: CASE EVENT DATE: 20190103
